FAERS Safety Report 5606344-X (Version None)
Quarter: 2008Q1

REPORT INFORMATION
  Report Type: 
  Country: None (occurrence: None)
  Receive Date: 20080129
  Receipt Date: 20070709
  Transmission Date: 20080703
  Serious: No
  Sender: FDA-Public Use
  Company Number: A0662539A

PATIENT
  Sex: Female

DRUGS (1)
  1. WELLBUTRIN [Suspect]
     Indication: DEPRESSION
     Dosage: 150MG UNKNOWN
     Route: 065
     Dates: end: 20070601

REACTIONS (4)
  - FLUID RETENTION [None]
  - NERVOUSNESS [None]
  - WEIGHT DECREASED [None]
  - WEIGHT INCREASED [None]
